FAERS Safety Report 7814562-5 (Version None)
Quarter: 2011Q4

REPORT INFORMATION
  Report Type: 
  Country: None (occurrence: None)
  Receive Date: 20111012
  Receipt Date: 20111003
  Transmission Date: 20120403
  Serious: Yes (Hospitalization)
  Sender: FDA-Public Use
  Company Number: AUR-APL-2011-03951

PATIENT
  Age: 43 Year
  Sex: Male

DRUGS (15)
  1. ZOLPIDEM [Suspect]
     Indication: DEPRESSION
     Dosage: AT NIGHT, UNKNOWN
  2. VENLAFAXINE HYDROCHLORIDE [Suspect]
     Indication: DEPRESSION
     Dosage: (75 MG, 1 D), UNKNOWN; (150 MG, 1D), UNKNOWN
  3. VALPROATE SODIUM [Suspect]
     Indication: PRODUCT USED FOR UNKNOWN INDICATION
     Dosage: (600 MG, 1 NIGHT), UNKNOWN
  4. FLUVOXAMINE MALEATE [Suspect]
     Indication: MAJOR DEPRESSION
     Dosage: (100 MG, 1 D), UNKNOWN
  5. FLUOXETINE HYDROCHLORIDE [Suspect]
     Indication: PRODUCT USED FOR UNKNOWN INDICATION
     Dosage: (20 MG, 1 D), UNKNOWN
  6. OLANZAPINE [Suspect]
     Indication: PRODUCT USED FOR UNKNOWN INDICATION
     Dosage: (5 MG, AT NIGHT), UNKNOWN; (35 MG, AT NIGHT), UNKNOWN
  7. MOCLOBEMIDE (MOCLOBEMIDE) [Concomitant]
     Indication: DEPRESSION
     Dosage: (300 MG, 1 D), UNKNOWN
  8. MIRTAZAPINE [Suspect]
     Indication: MAJOR DEPRESSION
     Dosage: (30 MG, 1 D), UNKNOWN; (45 MG, 1 D), UNKNOWN
  9. ZALEPLON [Suspect]
     Indication: PRODUCT USED FOR UNKNOWN INDICATION
     Dosage: AT NIGHT (AT NIGHT), UNKNOWN
  10. LORAZEPAM [Suspect]
     Indication: DEPRESSION
     Dosage: 1 TO 2 MG BEFORE SLEEP, UNKNOWN
  11. CLORAZEPATE DIPOTASSIUM [Suspect]
     Indication: DEPRESSION
     Dosage: (5 MG, BEFORE SLEEP), UNKNOWN
  12. LEVOTHYROXINE SODIUM [Concomitant]
  13. SERTRALINE HYDROCHLORIDE [Suspect]
     Indication: DEPRESSION
     Dosage: (100 MG, 1 IN 1 D), UNKNOWN
  14. CHLORPROTHIXENE (CHLORPROTHIXENE) [Suspect]
     Indication: PRODUCT USED FOR UNKNOWN INDICATION
     Dosage: (60 MG, 1 D), UNKNOWN
  15. MIANSERIN (MIANSERIN) [Suspect]
     Indication: DEPRESSION
     Dosage: (30 MG, AT NIGHT), UNKNOWN

REACTIONS (2)
  - FRONTOTEMPORAL DEMENTIA [None]
  - DRUG INEFFECTIVE [None]
